FAERS Safety Report 23198737 (Version 1)
Quarter: 2023Q4

REPORT INFORMATION
  Report Type: Spontaneous
  Country: US (occurrence: US)
  Receive Date: 20231117
  Receipt Date: 20231117
  Transmission Date: 20240110
  Serious: Yes (Death)
  Sender: FDA-Public Use
  Company Number: US-PFIZER INC-PV202300187635

PATIENT
  Age: 50 Year
  Sex: Female

DRUGS (13)
  1. IBRANCE [Suspect]
     Active Substance: PALBOCICLIB
     Dosage: QD FOR 21 DAYS THEN 7 DAYS OFF
     Route: 048
     Dates: start: 2019, end: 2023
  2. KEPPRA XR [Concomitant]
     Active Substance: LEVETIRACETAM
     Dosage: 750 MG
  3. TYLENOL [Concomitant]
     Active Substance: ACETAMINOPHEN
     Dosage: 325 MG
  4. ONDANSETRON [Concomitant]
     Active Substance: ONDANSETRON
     Dosage: 4 MG
  5. PROCHLORPERAZINE [Concomitant]
     Active Substance: PROCHLORPERAZINE
     Dosage: 10 MG
  6. PROVENTIL HFA [SALBUTAMOL] [Concomitant]
     Dosage: IN W/DOS CTR 200 PUFFS
  7. MEGESTROL ACETATE [Concomitant]
     Active Substance: MEGESTROL ACETATE
     Dosage: 20 MG
  8. VITAMIN D NOS [Concomitant]
     Active Substance: VITAMIN D NOS
     Dosage: 1000 IU
  9. ALBUTEROL [Concomitant]
     Active Substance: ALBUTEROL
     Dosage: 0.083% (2.5MG X 3ML) 25 X 3ML
  10. FASLODEX [Concomitant]
     Active Substance: FULVESTRANT
     Dosage: 250 MG/5ML INJ. 5ML
  11. IPRATROPIUM [Concomitant]
     Active Substance: IPRATROPIUM
     Dosage: INHAL SOLN 25 X 2.5ML
  12. VITAMIN B12 [Concomitant]
     Active Substance: CYANOCOBALAMIN
     Dosage: 100 UG
  13. XARELTO [Concomitant]
     Active Substance: RIVAROXABAN
     Dosage: 10 MG

REACTIONS (1)
  - Death [Fatal]

NARRATIVE: CASE EVENT DATE: 20231110
